FAERS Safety Report 19580708 (Version 8)
Quarter: 2022Q1

REPORT INFORMATION
  Report Type: Spontaneous
  Country: KR (occurrence: KR)
  Receive Date: 20210719
  Receipt Date: 20220307
  Transmission Date: 20220423
  Serious: Yes (Hospitalization, Other)
  Sender: FDA-Public Use
  Company Number: KR-ALXN-A202108076

PATIENT
  Age: 48 Year
  Sex: Female
  Weight: 48 kg

DRUGS (5)
  1. SOLIRIS [Suspect]
     Active Substance: ECULIZUMAB
     Dosage: 900 MG, Q2W
     Route: 042
  2. SOLIRIS [Suspect]
     Active Substance: ECULIZUMAB
     Indication: Paroxysmal nocturnal haemoglobinuria
     Dosage: UNK
     Route: 042
     Dates: start: 202106
  3. METHYLON                           /00049601/ [Concomitant]
     Indication: Hypoaesthesia
     Dosage: 1 TABLET ONCE A DAY
     Route: 065
  4. METHYLON                           /00049601/ [Concomitant]
     Indication: Haematuria
     Dosage: 1 TABLET BID, FOR SEVERAL YEARS BUT STOPPED WHEN PATINET WAS HOSPITALIZED
     Route: 065
  5. METHYLON                           /00049601/ [Concomitant]
     Indication: Musculoskeletal chest pain
     Dosage: 2 TABLETS ONCE A DAY
     Route: 065

REACTIONS (16)
  - General physical health deterioration [Recovered/Resolved]
  - Pyelonephritis [Recovered/Resolved]
  - Genital haemorrhage [Unknown]
  - Septic shock [Recovered/Resolved]
  - Nausea [Unknown]
  - Vomiting [Unknown]
  - Urinary tract infection [Unknown]
  - Haemoglobin decreased [Recovering/Resolving]
  - Dizziness [Recovered/Resolved]
  - Hypotension [Recovered/Resolved]
  - Musculoskeletal chest pain [Recovered/Resolved]
  - Hypoaesthesia [Recovered/Resolved]
  - Varicose vein [Unknown]
  - Haematuria [Recovered/Resolved]
  - Urine output decreased [Recovered/Resolved]
  - Urine odour abnormal [Recovered/Resolved]

NARRATIVE: CASE EVENT DATE: 20210101
